FAERS Safety Report 5253627-1 (Version None)
Quarter: 2007Q1

REPORT INFORMATION
  Report Type: 
  Country: None (occurrence: None)
  Receive Date: 20070301
  Receipt Date: 20070220
  Transmission Date: 20070707
  Serious: Yes (Other)
  Sender: FDA-Public Use
  Company Number: DE-PFIZER INC-2007013750

PATIENT
  Sex: Male

DRUGS (2)
  1. XALATAN [Suspect]
     Indication: GLAUCOMA
  2. XALACOM [Suspect]
     Indication: GLAUCOMA

REACTIONS (2)
  - CIRCULATORY COLLAPSE [None]
  - PLEURISY [None]
